FAERS Safety Report 10203249 (Version 2)
Quarter: 2014Q2

REPORT INFORMATION
  Report Type: Spontaneous
  Country: CA (occurrence: CA)
  Receive Date: 20140529
  Receipt Date: 20140613
  Transmission Date: 20141212
  Serious: Yes (Hospitalization, Other)
  Sender: FDA-Public Use
  Company Number: CA-AMGEN-CANSP2014038523

PATIENT
  Age: 85 Year
  Sex: Female

DRUGS (7)
  1. PROLIA [Suspect]
     Indication: OSTEOPOROSIS POSTMENOPAUSAL
     Dosage: 60 MG, Q6MO
     Route: 058
     Dates: start: 201401
  2. SYNTHROID [Concomitant]
     Dosage: 0.175 MG, QD
  3. FUROSEMIDE [Concomitant]
     Dosage: 23 MG, QD
  4. ACETAMINOPHEN [Concomitant]
     Dosage: (2 TABS), QD
  5. CALCIUM [Concomitant]
     Dosage: UNK UNK, BID
  6. VITAMIN D                          /00107901/ [Concomitant]
     Dosage: UNK UNK, BID
  7. VITAMIN D                          /00107901/ [Concomitant]
     Dosage: 50000 IU, QWK

REACTIONS (5)
  - Cerebrovascular accident [Recovered/Resolved]
  - Extrasystoles [Unknown]
  - Malaise [Unknown]
  - Confusional state [Unknown]
  - Frustration [Unknown]
